FAERS Safety Report 5045547-2 (Version None)
Quarter: 2006Q2

REPORT INFORMATION
  Report Type: 
  Country: None (occurrence: None)
  Receive Date: 20060601
  Receipt Date: 20060404
  Transmission Date: 20061013
  Serious: No
  Sender: FDA-Public Use
  Company Number: 2006-BP-01359BP

PATIENT
  Age: 74 Year
  Sex: Male

DRUGS (9)
  1. SPIRIVA [Suspect]
     Indication: CHRONIC OBSTRUCTIVE PULMONARY DISEASE
     Dosage: 18 MCG (18 MCG, 1 IN 1 D), IH
     Route: 055
  2. COZAAR [Concomitant]
  3. ATENOLOL [Concomitant]
  4. CLARITIN [Concomitant]
  5. ADALAT [Concomitant]
  6. ZOCOR [Concomitant]
  7. ENTERIC [Concomitant]
  8. FLONASE [Concomitant]
  9. IBUPROFEN [Concomitant]

REACTIONS (1)
  - AGEUSIA [None]
